FAERS Safety Report 5088787-9 (Version None)
Quarter: 2006Q3

REPORT INFORMATION
  Report Type: 
  Country: None (occurrence: None)
  Receive Date: 20060824
  Receipt Date: 20060824
  Transmission Date: 20061208
  Serious: Yes (Death)
  Sender: FDA-Public Use
  Company Number: None

PATIENT
  Sex: Female
  Weight: 62 kg

DRUGS (2)
  1. OCTREOTIDE ACETATE [Suspect]
     Indication: HEPATIC NEOPLASM MALIGNANT
     Dosage: 200 MCG TID SQ
     Route: 058
     Dates: start: 20060726, end: 20060803
  2. OCTREOTIDE ACETATE [Suspect]
     Indication: HEPATIC NEOPLASM MALIGNANT
     Dosage: 30 MG IM GIVEN ONCE
     Route: 030
     Dates: start: 20060802

REACTIONS (2)
  - HEPATIC NEOPLASM MALIGNANT [None]
  - MALIGNANT NEOPLASM PROGRESSION [None]
